FAERS Safety Report 7050645-8 (Version None)
Quarter: 2010Q4

REPORT INFORMATION
  Report Type: 
  Country: None (occurrence: None)
  Receive Date: 20101018
  Receipt Date: 20101014
  Transmission Date: 20110411
  Serious: Yes (Hospitalization)
  Sender: FDA-Public Use
  Company Number: GB-MERCK-0905GBR00038

PATIENT
  Age: 56 Year
  Sex: Male

DRUGS (1)
  1. JANUVIA [Suspect]
     Indication: DIABETES MELLITUS
     Route: 048
     Dates: end: 20090101

REACTIONS (7)
  - ASTHMA [None]
  - CHEST PAIN [None]
  - LACTIC ACIDOSIS [None]
  - LIMB DISCOMFORT [None]
  - MUSCLE ATROPHY [None]
  - RHINORRHOEA [None]
  - UPPER RESPIRATORY TRACT INFECTION [None]
